FAERS Safety Report 7489097-2 (Version None)
Quarter: 2011Q2

REPORT INFORMATION
  Report Type: 
  Country: None (occurrence: None)
  Receive Date: 20110518
  Receipt Date: 20110514
  Transmission Date: 20111010
  Serious: Yes (Other)
  Sender: FDA-Public Use
  Company Number: FR-PFIZER INC-2010173354

PATIENT
  Age: 80 Year
  Sex: Female
  Weight: 52 kg

DRUGS (5)
  1. EPLERENONE [Suspect]
     Dosage: 25 MG, 1X/DAY
     Dates: start: 20090605
  2. EPLERENONE [Suspect]
     Dosage: 25 MG, 1X/DAY
     Dates: start: 20100212
  3. EPLERENONE [Suspect]
     Dosage: 12 MG, 1X/DAY
     Dates: start: 20091113
  4. FUROSEMIDE [Suspect]
  5. EPLERENONE [Suspect]
     Dosage: 12 MG, 1X/DAY
     Dates: start: 20100514

REACTIONS (1)
  - HYPONATRAEMIA [None]
